FAERS Safety Report 16122043 (Version 2)
Quarter: 2019Q2

REPORT INFORMATION
  Report Type: Spontaneous
  Country: US (occurrence: US)
  Receive Date: 20190327
  Receipt Date: 20190422
  Transmission Date: 20190711
  Serious: No
  Sender: FDA-Public Use
  Company Number: US-PFIZER INC-2019128165

PATIENT
  Age: 14 Year
  Sex: Male

DRUGS (1)
  1. GENOTROPIN [Suspect]
     Active Substance: SOMATROPIN
     Dosage: 2 MG, DAILY
     Dates: start: 20170511

REACTIONS (6)
  - Skin disorder [Unknown]
  - Nasal disorder [Unknown]
  - Hypersomnia [Unknown]
  - Enuresis [Unknown]
  - Headache [Unknown]
  - Pain [Unknown]
